FAERS Safety Report 7913910-5 (Version None)
Quarter: 2011Q4

REPORT INFORMATION
  Report Type: 
  Country: None (occurrence: None)
  Receive Date: 20111115
  Receipt Date: 20111109
  Transmission Date: 20120403
  Serious: Yes (Other)
  Sender: FDA-Public Use
  Company Number: CA-PFIZER INC-2011274749

PATIENT
  Age: 57 Year
  Sex: Female

DRUGS (1)
  1. XALATAN [Suspect]
     Indication: GLAUCOMA
     Dosage: 1 DROP 1X/DAY IN RIGHT EYE
     Route: 047
     Dates: start: 20110501

REACTIONS (1)
  - VISUAL IMPAIRMENT [None]
